FAERS Safety Report 10917192 (Version 2)
Quarter: 2015Q2

REPORT INFORMATION
  Report Type: Spontaneous
  Country: US (occurrence: US)
  Receive Date: 20150316
  Receipt Date: 20150524
  Transmission Date: 20150821
  Serious: No
  Sender: FDA-Public Use
  Company Number: US-JNJFOC-20140410369

PATIENT
  Sex: Male
  Weight: 77.11 kg

DRUGS (1)
  1. ZYTIGA [Suspect]
     Active Substance: ABIRATERONE ACETATE
     Indication: PROSTATE CANCER
     Dosage: 250 MG *4 TABLETS
     Route: 048
     Dates: start: 2014

REACTIONS (5)
  - Altered visual depth perception [Not Recovered/Not Resolved]
  - Drug dose omission [Unknown]
  - Eye disorder [Not Recovered/Not Resolved]
  - Hearing impaired [Not Recovered/Not Resolved]
  - Asthenia [Not Recovered/Not Resolved]
